FAERS Safety Report 5405250-3 (Version None)
Quarter: 2007Q3

REPORT INFORMATION
  Report Type: 
  Country: None (occurrence: None)
  Receive Date: 20070803
  Receipt Date: 20070727
  Transmission Date: 20080115
  Serious: Yes (Death)
  Sender: FDA-Public Use
  Company Number: US-KINGPHARMUSA00001-K200401893

PATIENT

DRUGS (5)
  1. DELESTROGEN [Suspect]
     Indication: OVARIAN FAILURE POSTOPERATIVE
     Dosage: 40 MG, QD
     Route: 030
  2. ESTRACE [Suspect]
     Indication: MENOPAUSAL SYMPTOMS
     Dosage: 2 MG, QD
  3. PREMARIN [Suspect]
     Indication: MENOPAUSAL SYMPTOMS
  4. PROVERA [Suspect]
     Indication: MENOPAUSAL SYMPTOMS
     Dosage: 2.5 MG, QD
  5. ESTRATEST H.S. [Suspect]
     Indication: MENOPAUSAL SYMPTOMS

REACTIONS (2)
  - BREAST CANCER [None]
  - HEPATIC NEOPLASM MALIGNANT [None]
